FAERS Safety Report 23397949 (Version 2)
Quarter: 2024Q1

REPORT INFORMATION
  Report Type: Spontaneous
  Country: US (occurrence: US)
  Receive Date: 20240112
  Receipt Date: 20240207
  Transmission Date: 20240409
  Serious: No
  Sender: FDA-Public Use
  Company Number: US-PFIZER INC-PV202300141708

PATIENT
  Age: 82 Year
  Sex: Female
  Weight: 47.17 kg

DRUGS (3)
  1. IBRANCE [Suspect]
     Active Substance: PALBOCICLIB
     Indication: Breast cancer stage IV
     Dosage: 125 MG, CYCLIC (1 DAILY FOR 21 DAYS OF A 28 DAY CYCLE)
     Route: 048
     Dates: start: 20231010
  2. LETROZOLE [Concomitant]
     Active Substance: LETROZOLE
     Dosage: 2.5 MG, DAILY
     Dates: start: 20230619
  3. CALTRATE WITH VITAMIN D [Concomitant]
     Active Substance: CALCIUM CARBONATE\CHOLECALCIFEROL
     Indication: Osteoporosis
     Dosage: ONE TABLET, 600 MILLIGRAMS

REACTIONS (5)
  - Constipation [Unknown]
  - Illness [Unknown]
  - Mean platelet volume decreased [Unknown]
  - Monocyte count abnormal [Unknown]
  - Haematocrit decreased [Unknown]

NARRATIVE: CASE EVENT DATE: 20231201
